FAERS Safety Report 11874549 (Version 2)
Quarter: 2016Q1

REPORT INFORMATION
  Report Type: Report from Study
  Country: FR (occurrence: FR)
  Receive Date: 20151229
  Receipt Date: 20160210
  Transmission Date: 20160526
  Serious: Yes (Hospitalization)
  Sender: FDA-Public Use
  Company Number: PHHY2015FR078323

PATIENT
  Sex: Male

DRUGS (1)
  1. AFINITOR [Suspect]
     Active Substance: EVEROLIMUS
     Indication: METASTATIC RENAL CELL CARCINOMA
     Dosage: 10 MG, QD
     Route: 048
     Dates: start: 201505

REACTIONS (6)
  - Fall [Recovering/Resolving]
  - Rectal haemorrhage [Recovered/Resolved]
  - Anaemia [Recovering/Resolving]
  - Second primary malignancy [Unknown]
  - Petechiae [Recovering/Resolving]
  - Prostate cancer [Unknown]

NARRATIVE: CASE EVENT DATE: 20150605
